FAERS Safety Report 5981644-2 (Version None)
Quarter: 2008Q4

REPORT INFORMATION
  Report Type: 
  Country: None (occurrence: None)
  Receive Date: 20081202
  Receipt Date: 20081120
  Transmission Date: 20090506
  Serious: Yes (Hospitalization)
  Sender: FDA-Public Use
  Company Number: 2008-04370

PATIENT
  Age: 60 Year
  Sex: Female
  Weight: 81.1 kg

DRUGS (5)
  1. VELCADE [Suspect]
     Indication: MANTLE CELL LYMPHOMA
     Dosage: 1.3 MG/M2
     Dates: start: 20080716, end: 20081013
  2. METHOTREXATE [Suspect]
     Indication: MANTLE CELL LYMPHOMA
     Dosage: 200 MG/M2. 800 MG/M2
     Dates: start: 20080717, end: 20081014
  3. METHOTREXATE [Suspect]
     Indication: MANTLE CELL LYMPHOMA
     Dosage: 200 MG/M2. 800 MG/M2
     Dates: start: 20080717, end: 20081014
  4. CYTARABINE [Suspect]
     Indication: MANTLE CELL LYMPHOMA
     Dosage: 18 MG/M2;
     Dates: start: 20080718, end: 20081015
  5. RITUXAN [Suspect]
     Indication: MANTLE CELL LYMPHOMA
     Dosage: 375 MG/M2
     Dates: start: 20080625, end: 20081013

REACTIONS (1)
  - ASPERGILLOMA [None]
